FAERS Safety Report 16801882 (Version 2)
Quarter: 2019Q4

REPORT INFORMATION
  Report Type: Spontaneous
  Country: JP (occurrence: JP)
  Receive Date: 20190912
  Receipt Date: 20191117
  Transmission Date: 20200122
  Serious: Yes (Hospitalization)
  Sender: FDA-Public Use
  Company Number: PHJP2019JP011977

PATIENT
  Age: 69 Year
  Sex: Male

DRUGS (1)
  1. CERTICAN [Suspect]
     Active Substance: EVEROLIMUS
     Indication: PROPHYLAXIS AGAINST TRANSPLANT REJECTION
     Dosage: UNK
     Route: 048
     Dates: start: 201905

REACTIONS (2)
  - Fracture [Unknown]
  - Fall [Unknown]
